FAERS Safety Report 25272080 (Version 2)
Quarter: 2025Q2

REPORT INFORMATION
  Report Type: Spontaneous
  Country: NZ (occurrence: NZ)
  Receive Date: 20250506
  Receipt Date: 20250521
  Transmission Date: 20250717
  Serious: Yes (Other)
  Sender: MERCK SHARP & DOHME LLC
  Company Number: NZ-009507513-2282191

PATIENT
  Sex: Male

DRUGS (2)
  1. PEMBROLIZUMAB [Suspect]
     Active Substance: PEMBROLIZUMAB
     Indication: Colorectal cancer
     Dates: start: 201708, end: 20180524
  2. PEMBROLIZUMAB [Suspect]
     Active Substance: PEMBROLIZUMAB
     Indication: Colorectal cancer
     Dates: start: 20250505

REACTIONS (4)
  - Adenocarcinoma [Unknown]
  - Small intestine carcinoma [Unknown]
  - Dyspnoea [Unknown]
  - Squamous cell carcinoma [Unknown]
